FAERS Safety Report 8274628-5 (Version None)
Quarter: 2012Q2

REPORT INFORMATION
  Report Type: 
  Country: None (occurrence: None)
  Receive Date: 20120411
  Receipt Date: 20120403
  Transmission Date: 20120825
  Serious: Yes (Life-Threatening, Hospitalization, Disabling, Other)
  Sender: FDA-Public Use
  Company Number: US-GLAXOSMITHKLINE-A0969331A

PATIENT
  Age: 81 Year
  Sex: Female
  Weight: 65.5 kg

DRUGS (3)
  1. COUMADIN [Suspect]
     Indication: ATRIAL FIBRILLATION
     Dates: end: 20120221
  2. XELODA [Concomitant]
     Indication: BREAST CANCER
  3. TYKERB [Suspect]
     Indication: BREAST CANCER
     Dosage: 250MG THREE TIMES PER DAY
     Route: 048
     Dates: start: 20120201, end: 20120219

REACTIONS (7)
  - THROMBOSIS [None]
  - INTERNATIONAL NORMALISED RATIO INCREASED [None]
  - INTESTINAL ISCHAEMIA [None]
  - HYPOXIA [None]
  - DIARRHOEA [None]
  - INTESTINAL INFARCTION [None]
  - COAGULOPATHY [None]
